FAERS Safety Report 23444660 (Version 1)
Quarter: 2024Q1

REPORT INFORMATION
  Report Type: Spontaneous
  Country: US (occurrence: US)
  Receive Date: 20240125
  Receipt Date: 20240125
  Transmission Date: 20240410
  Serious: Yes (Hospitalization, Other)
  Sender: FDA-Public Use
  Company Number: US-Blueprint Medicines Corporation-LT-US-2024-000130

PATIENT
  Age: 68 Year
  Sex: Female

DRUGS (3)
  1. AYVAKIT [Suspect]
     Active Substance: AVAPRITINIB
     Indication: Systemic mastocytosis
     Route: 065
  2. AYVAKIT [Suspect]
     Active Substance: AVAPRITINIB
     Indication: Advanced systemic mastocytosis
     Route: 065
  3. AYVAKIT [Suspect]
     Active Substance: AVAPRITINIB
     Route: 065

REACTIONS (10)
  - Mast cell degranulation present [Recovered/Resolved]
  - Urosepsis [Unknown]
  - Anaemia [Unknown]
  - Arthralgia [Recovered/Resolved]
  - Joint swelling [Recovered/Resolved]
  - Periorbital oedema [Recovering/Resolving]
  - Alopecia [Recovering/Resolving]
  - Disturbance in attention [Recovering/Resolving]
  - Depression [Recovering/Resolving]
  - Tryptase increased [Recovering/Resolving]
